FAERS Safety Report 4642796-X (Version None)
Quarter: 2005Q2

REPORT INFORMATION
  Report Type: 
  Country: None (occurrence: None)
  Receive Date: 20050421
  Receipt Date: 20050308
  Transmission Date: 20051028
  Serious: Yes (Life-Threatening)
  Sender: FDA-Public Use
  Company Number: PHBS2005ES03416

PATIENT
  Age: 77 Year
  Sex: Male

DRUGS (12)
  1. NIFEDIPINE [Suspect]
     Indication: HYPERTENSION
     Dosage: 60 MG, Q12H
  2. VALSARTAN [Suspect]
     Indication: HYPERTENSION
     Dosage: 80 MG, Q12H
  3. CLARITHROMYCIN (NGX) (CLARITHYROMYCIN) [Suspect]
     Dosage: 500 MG, Q12H
  4. CAPTOPRIL [Suspect]
     Dosage: 25 MG, Q12H
  5. DOXAZOSIN (NGX) (DOXAZOSIN) [Suspect]
     Dosage: SEE IMAGE
  6. METFORMIN HCL [Concomitant]
  7. GLYBURIDE [Concomitant]
  8. ASPIRIN [Concomitant]
  9. ALBUTEROL [Concomitant]
  10. BUDESONIDE [Concomitant]
  11. FUROSEMIDE [Concomitant]
  12. ERYTHROMYCIN [Concomitant]

REACTIONS (39)
  - ABDOMINAL PAIN [None]
  - ATRIOVENTRICULAR BLOCK [None]
  - BLOOD CREATINE PHOSPHOKINASE INCREASED [None]
  - BLOOD CREATINE PHOSPHOKINASE MB INCREASED [None]
  - BLOOD CREATININE INCREASED [None]
  - BLOOD PRESSURE SYSTOLIC INCREASED [None]
  - BLOOD UREA INCREASED [None]
  - BRADYCARDIA [None]
  - COUGH [None]
  - CREATININE RENAL CLEARANCE DECREASED [None]
  - CYANOSIS [None]
  - DEPRESSED LEVEL OF CONSCIOUSNESS [None]
  - DRUG INTERACTION [None]
  - DYSPNOEA [None]
  - DYSPNOEA EXERTIONAL [None]
  - ELECTROCARDIOGRAM QRS COMPLEX SHORTENED [None]
  - ELECTROLYTE IMBALANCE [None]
  - HAEMODIALYSIS [None]
  - HYPERGLYCAEMIA [None]
  - HYPERKALAEMIA [None]
  - HYPERTENSION [None]
  - HYPOCALCAEMIA [None]
  - HYPONATRAEMIA [None]
  - HYPOTENSION [None]
  - LEGIONELLA SEROLOGY POSITIVE [None]
  - METABOLIC ACIDOSIS [None]
  - OEDEMA PERIPHERAL [None]
  - ORTHOPNOEA [None]
  - OXYGEN SATURATION DECREASED [None]
  - PERIPHERAL COLDNESS [None]
  - PRODUCTIVE COUGH [None]
  - PULSE ABSENT [None]
  - RENAL IMPAIRMENT [None]
  - RESPIRATORY TRACT INFECTION [None]
  - RHYTHM IDIOVENTRICULAR [None]
  - SHOCK [None]
  - TACHYPNOEA [None]
  - URINE OUTPUT DECREASED [None]
  - VASCULAR RESISTANCE SYSTEMIC DECREASED [None]
